FAERS Safety Report 21145729 (Version 1)
Quarter: 2022Q3

REPORT INFORMATION
  Report Type: Spontaneous
  Country: US (occurrence: US)
  Receive Date: 20220729
  Receipt Date: 20220729
  Transmission Date: 20221027
  Serious: Yes (Hospitalization, Other)
  Sender: FDA-Public Use
  Company Number: US-Axellia-003933

PATIENT

DRUGS (1)
  1. DAPTOMYCIN [Suspect]
     Active Substance: DAPTOMYCIN
     Indication: Product used for unknown indication
     Dosage: ONCE A DAY FOR 6 WEEKS

REACTIONS (2)
  - Adverse event [Not Recovered/Not Resolved]
  - Eosinophilic pneumonia acute [Unknown]
